FAERS Safety Report 20954976 (Version 9)
Quarter: 2022Q4

REPORT INFORMATION
  Report Type: Spontaneous
  Country: US (occurrence: US)
  Receive Date: 20220614
  Receipt Date: 20221007
  Transmission Date: 20230113
  Serious: No
  Sender: FDA-Public Use
  Company Number: US-PFIZER INC-202200760105

PATIENT
  Age: 20 Month
  Sex: Female
  Weight: 10.25 kg

DRUGS (11)
  1. GENOTROPIN [Suspect]
     Active Substance: SOMATROPIN
     Indication: Denys-Drash syndrome
     Dosage: 0.4 MG, DAILY (INJECTED EVERY NIGHT)
     Dates: start: 20220429
  2. GENOTROPIN [Suspect]
     Active Substance: SOMATROPIN
     Indication: Iron deficiency
     Dosage: 0.4 MG, DAILY, EVERY NIGHT
     Dates: start: 20220430
  3. GENOTROPIN [Suspect]
     Active Substance: SOMATROPIN
     Indication: Hypocalcaemia
  4. GENOTROPIN [Suspect]
     Active Substance: SOMATROPIN
     Indication: Hypophosphataemia
  5. GENOTROPIN [Suspect]
     Active Substance: SOMATROPIN
     Indication: Dialysis
  6. GENOTROPIN [Suspect]
     Active Substance: SOMATROPIN
     Indication: End stage renal disease
  7. GENOTROPIN [Suspect]
     Active Substance: SOMATROPIN
     Indication: Nephrectomy
  8. GENOTROPIN [Suspect]
     Active Substance: SOMATROPIN
     Indication: Hyperparathyroidism secondary
  9. GENOTROPIN [Suspect]
     Active Substance: SOMATROPIN
     Indication: Secondary hypertension
  10. GENOTROPIN [Suspect]
     Active Substance: SOMATROPIN
     Indication: Blood growth hormone
  11. MIRALAX [Concomitant]
     Active Substance: POLYETHYLENE GLYCOL 3350
     Dosage: UNK

REACTIONS (4)
  - Needle issue [Unknown]
  - Incorrect dose administered by device [Unknown]
  - Drug dose omission by device [Unknown]
  - Device breakage [Unknown]

NARRATIVE: CASE EVENT DATE: 20220101
